FAERS Safety Report 17279680 (Version 7)
Quarter: 2020Q2

REPORT INFORMATION
  Report Type: Report from Study
  Country: RU (occurrence: RU)
  Receive Date: 20200116
  Receipt Date: 20200612
  Transmission Date: 20200713
  Serious: Yes (Life-Threatening, Hospitalization)
  Sender: FDA-Public Use
  Company Number: RU-RIGEL PHARMACEUTICALS, INC.-2020FOS000009

PATIENT
  Age: 79 Year
  Sex: Female
  Weight: 63 kg

DRUGS (12)
  1. TORASEMIDE [Concomitant]
     Active Substance: TORSEMIDE
     Indication: PROPHYLAXIS
     Dosage: 5 MG, QD
     Route: 048
     Dates: start: 201904
  2. CORDAFLEX [Concomitant]
     Active Substance: NIFEDIPINE
     Indication: HYPERTENSION
     Dosage: 20 MG, BID-TID
     Route: 048
     Dates: start: 201904
  3. FOSTAMATINIB DISODIUM 150 MG [Suspect]
     Active Substance: FOSTAMATINIB DISODIUM
     Dosage: 150 MG
     Dates: start: 20191224, end: 20200105
  4. VEROSPIRON [Concomitant]
     Active Substance: SPIRONOLACTONE
     Indication: HYPERTENSION
     Dosage: 25 MG, QD
     Route: 048
     Dates: start: 201904
  5. ASPARCAM [ASPARTIC ACID;MAGNESIUM ASPARTATE] [Concomitant]
     Indication: PROPHYLAXIS
     Dosage: 1 UNK, TID
     Route: 048
     Dates: start: 201904
  6. FOSTAMATINIB DISODIUM 150 MG [Suspect]
     Active Substance: FOSTAMATINIB DISODIUM
     Indication: WARM TYPE HAEMOLYTIC ANAEMIA
     Dosage: 100 MG, BID
     Route: 048
     Dates: start: 20200120
  7. FOSTAMATINIB DISODIUM 150 MG [Suspect]
     Active Substance: FOSTAMATINIB DISODIUM
     Dosage: 100 MG, BID
     Dates: start: 20191125, end: 20191224
  8. OMEPRAZOLE. [Concomitant]
     Active Substance: OMEPRAZOLE
     Indication: PROPHYLAXIS
     Dosage: 20 MG, QD
     Route: 048
     Dates: start: 201904
  9. PREDNISOLON [PREDNISOLONE ACETATE] [Concomitant]
     Active Substance: PREDNISOLONE ACETATE
     Indication: WARM TYPE HAEMOLYTIC ANAEMIA
     Dosage: 30 MG, QD
     Route: 048
     Dates: start: 201904
  10. ENALAPRIL [Concomitant]
     Active Substance: ENALAPRIL
     Indication: HYPERTENSION
     Dosage: 10 MG, BID
     Route: 048
     Dates: start: 2010
  11. DEXAMETHASONE. [Concomitant]
     Active Substance: DEXAMETHASONE
     Indication: PRODUCT USED FOR UNKNOWN INDICATION
     Dosage: 3 TABLETS
  12. CARVEDILOL. [Concomitant]
     Active Substance: CARVEDILOL
     Indication: PRODUCT USED FOR UNKNOWN INDICATION
     Dosage: 6.25 MG, BID

REACTIONS (2)
  - Hypertension [Recovered/Resolved]
  - Atrial fibrillation [Recovered/Resolved]

NARRATIVE: CASE EVENT DATE: 20200105
